FAERS Safety Report 7207071-8 (Version None)
Quarter: 2011Q1

REPORT INFORMATION
  Report Type: 
  Country: None (occurrence: None)
  Receive Date: 20110103
  Receipt Date: 20101230
  Transmission Date: 20110831
  Serious: Yes (Hospitalization)
  Sender: FDA-Public Use
  Company Number: B0691570A

PATIENT
  Sex: Female

DRUGS (5)
  1. ZALDIAR [Suspect]
     Indication: PAIN MANAGEMENT
     Route: 048
     Dates: start: 20100818, end: 20100819
  2. ANTALGIC [Concomitant]
     Indication: PAIN MANAGEMENT
     Route: 065
     Dates: start: 20100801
  3. ORBENINE [Concomitant]
     Route: 023
     Dates: start: 20100813, end: 20100818
  4. ADVIL [Concomitant]
     Route: 048
     Dates: start: 20100813, end: 20100818
  5. AUGMENTIN [Suspect]
     Indication: ABSCESS
     Route: 048
     Dates: start: 20100818

REACTIONS (5)
  - NAUSEA [None]
  - HEADACHE [None]
  - PARAESTHESIA [None]
  - VOMITING [None]
  - HYPERHIDROSIS [None]
